FAERS Safety Report 5200773-4 (Version None)
Quarter: 2006Q4

REPORT INFORMATION
  Report Type: 
  Country: None (occurrence: None)
  Receive Date: 20061016
  Receipt Date: 20060711
  Transmission Date: 20070319
  Serious: No
  Sender: FDA-Public Use
  Company Number: 2006SP002662

PATIENT
  Age: 58 Year
  Sex: Female
  Weight: 58.9676 kg

DRUGS (3)
  1. LUNESTA [Suspect]
     Indication: CIRCADIAN RHYTHM SLEEP DISORDER
     Dosage: 2 MG, ORAL
     Route: 048
     Dates: start: 20060501
  2. DIPHENHYDRAMINE HYDROCHLORIDE [Concomitant]
  3. ATENOLOL [Concomitant]

REACTIONS (1)
  - HYPOTENSION [None]
